FAERS Safety Report 5442436-6 (Version None)
Quarter: 2007Q3

REPORT INFORMATION
  Report Type: 
  Country: None (occurrence: None)
  Receive Date: 20070904
  Receipt Date: 20070823
  Transmission Date: 20080115
  Serious: Yes (Other)
  Sender: FDA-Public Use
  Company Number: US-PFIZER INC-2007071148

PATIENT
  Sex: Male
  Weight: 54.4 kg

DRUGS (8)
  1. LYRICA [Suspect]
     Indication: BACK PAIN
  2. DARVOCET [Concomitant]
  3. COREG [Concomitant]
  4. DIGOXIN [Concomitant]
  5. FELODIPINE [Concomitant]
  6. BENAZEPRIL HYDROCHLORIDE [Concomitant]
  7. AMIODARONE HCL [Concomitant]
  8. ASPIRIN [Concomitant]

REACTIONS (2)
  - DEAFNESS [None]
  - DRUG DEPENDENCE [None]
